FAERS Safety Report 6571998-0 (Version None)
Quarter: 2010Q1

REPORT INFORMATION
  Report Type: 
  Country: None (occurrence: None)
  Receive Date: 20100205
  Receipt Date: 20100126
  Transmission Date: 20100710
  Serious: No
  Sender: FDA-Public Use
  Company Number: US-ROXANE LABORATORIES, INC.-2010-RO-00122RO

PATIENT
  Sex: Male

DRUGS (1)
  1. DEXAMETHASONE [Suspect]
     Indication: PRURITUS
     Dosage: 4 MG
     Route: 048
     Dates: start: 20100101

REACTIONS (1)
  - CARCINOEMBRYONIC ANTIGEN INCREASED [None]
